FAERS Safety Report 4606206-0 (Version None)
Quarter: 2005Q1

REPORT INFORMATION
  Report Type: 
  Country: None (occurrence: None)
  Receive Date: 20050115
  Receipt Date: 20040408
  Transmission Date: 20050727
  Serious: Yes (Other)
  Sender: FDA-Public Use
  Company Number: A03200401102

PATIENT
  Age: 73 Year
  Sex: Female
  Weight: 73.4827 kg

DRUGS (3)
  1. AMBIEN [Suspect]
     Indication: INSOMNIA
     Dosage: 10 MG ONCE  - ORAL
     Route: 048
     Dates: start: 20040401, end: 20040401
  2. ATORVASTATIN CALCIUM [Concomitant]
  3. LEVOTHYROXINE SODIUM [Concomitant]

REACTIONS (3)
  - DIZZINESS [None]
  - HALLUCINATION [None]
  - TREMOR [None]
